FAERS Safety Report 7796456-7 (Version None)
Quarter: 2011Q4

REPORT INFORMATION
  Report Type: 
  Country: None (occurrence: None)
  Receive Date: 20111005
  Receipt Date: 20110930
  Transmission Date: 20120403
  Serious: No
  Sender: FDA-Public Use
  Company Number: US-BIOGENIDEC-2011BI037611

PATIENT
  Age: 60 Year
  Sex: Female

DRUGS (3)
  1. AVONEX [Concomitant]
     Route: 030
     Dates: start: 20100813
  2. AVONEX [Concomitant]
     Indication: MULTIPLE SCLEROSIS
     Route: 030
  3. TYSABRI [Suspect]
     Indication: MULTIPLE SCLEROSIS
     Route: 042
     Dates: start: 20110617, end: 20110812

REACTIONS (4)
  - MUSCULOSKELETAL PAIN [None]
  - HYPOAESTHESIA [None]
  - MUSCLE TIGHTNESS [None]
  - PERIPHERAL COLDNESS [None]
